FAERS Safety Report 4706003-1 (Version None)
Quarter: 2005Q2

REPORT INFORMATION
  Report Type: 
  Country: None (occurrence: None)
  Receive Date: 20050629
  Receipt Date: 20050614
  Transmission Date: 20051028
  Serious: Yes (Other)
  Sender: FDA-Public Use
  Company Number: 200506IM000233

PATIENT
  Age: 19 Year
  Sex: Female

DRUGS (3)
  1. ACTIMMUNE [Suspect]
     Indication: CHRONIC GRANULOMATOUS DISEASE
     Dosage: 100 UG, TIW, SUBCUTANEOUS
     Route: 058
  2. BACTRIM [Concomitant]
  3. ANTIFUNGAL AGENT NOS [Concomitant]

REACTIONS (6)
  - CHEST DISCOMFORT [None]
  - DYSPNOEA [None]
  - INFLUENZA LIKE ILLNESS [None]
  - RASH [None]
  - TREATMENT NONCOMPLIANCE [None]
  - URTICARIA [None]
